FAERS Safety Report 6766367-4 (Version None)
Quarter: 2010Q2

REPORT INFORMATION
  Report Type: 
  Country: None (occurrence: None)
  Receive Date: 20100611
  Receipt Date: 20100528
  Transmission Date: 20101027
  Serious: Yes (Other)
  Sender: FDA-Public Use
  Company Number: PHHY2010US35044

PATIENT
  Sex: Female

DRUGS (1)
  1. ZOMETA [Suspect]

REACTIONS (3)
  - HYPERCALCAEMIA [None]
  - HYPERTHYROIDISM [None]
  - PARANEOPLASTIC SYNDROME [None]
